FAERS Safety Report 17196868 (Version 2)
Quarter: 2019Q4

REPORT INFORMATION
  Report Type: Report from Study
  Country: JP (occurrence: JP)
  Receive Date: 20191224
  Receipt Date: 20191229
  Transmission Date: 20200122
  Serious: Yes (Hospitalization)
  Sender: FDA-Public Use
  Company Number: JP-TAIHO ONCOLOGY  INC-JPTT190347

PATIENT
  Age: 73 Year
  Sex: Male
  Weight: 57.4 kg

DRUGS (10)
  1. IRINOTECAN100 [Suspect]
     Active Substance: IRINOTECAN HYDROCHLORIDE
     Indication: GASTRIC CANCER
     Dosage: ON DAYS 1 AND 15
     Route: 041
     Dates: start: 20191010, end: 20191120
  2. RILMAZAFONE HYDROCHLORIDE HYDRATE [Concomitant]
     Active Substance: RILMAZAFONE HYDROCHLORIDE
     Indication: INSOMNIA
     Dosage: AS NEEDED FOR SLEEPLESSNESS
     Route: 048
     Dates: start: 20191011
  3. PASTARON [Concomitant]
     Active Substance: UREA
     Indication: XERODERMA
     Dosage: APPROPRIATE DOSE, DETAILS NOT REPORTED
     Route: 061
     Dates: start: 20191017
  4. LONSURF [Suspect]
     Active Substance: TIPIRACIL HYDROCHLORIDE\TRIFLURIDINE
     Indication: GASTRIC CANCER
     Dosage: ON DAYS 1-5 AND 15-19 OF EACH 28-DAY CYCLE
     Route: 048
     Dates: start: 20191010, end: 20191120
  5. SUCRALFATE HYDRATE [Concomitant]
     Active Substance: SUCRALFATE
     Indication: PROPHYLAXIS
     Dosage: STARTED BEFORE INFORMED CONSENT WAS OBTAINED
     Route: 048
  6. FEBURIC [Concomitant]
     Active Substance: FEBUXOSTAT
     Indication: HYPERURICAEMIA
     Dosage: STARTED BEFORE INFORMED CONSENT WAS OBTAINED
     Route: 048
  7. LONSURF [Suspect]
     Active Substance: TIPIRACIL HYDROCHLORIDE\TRIFLURIDINE
     Dosage: ON DAYS 1-5 AND 15-19 OF EACH 28-DAY CYCLE, 2 CYCLES
     Route: 048
     Dates: start: 20191121, end: 20191209
  8. NEXIUM [Concomitant]
     Active Substance: ESOMEPRAZOLE MAGNESIUM
     Indication: PROPHYLAXIS
     Dosage: STARTED BEFORE INFORMED CONSENT WAS OBTAINED
     Route: 048
  9. IRINOTECAN100 [Suspect]
     Active Substance: IRINOTECAN HYDROCHLORIDE
     Dosage: ON DAYS 1 AND 15
     Route: 041
     Dates: start: 20191121
  10. DIART [Concomitant]
     Active Substance: AZOSEMIDE
     Indication: ASCITES
     Route: 048
     Dates: start: 20191113

REACTIONS (1)
  - Platelet count decreased [Recovering/Resolving]

NARRATIVE: CASE EVENT DATE: 20191204
